FAERS Safety Report 4503644-1 (Version None)
Quarter: 2004Q4

REPORT INFORMATION
  Report Type: 
  Country: None (occurrence: None)
  Receive Date: 20041115
  Receipt Date: 20041029
  Transmission Date: 20050328
  Serious: Yes (Life-Threatening, Hospitalization)
  Sender: FDA-Public Use
  Company Number: 2004-BP-07186NB

PATIENT
  Age: 73 Year
  Sex: Female

DRUGS (10)
  1. MICARDIS [Suspect]
     Indication: HYPERTENSION
     Dosage: 20 MG (20 MG), PO
     Route: 048
     Dates: start: 20040821, end: 20040823
  2. SIGMART (NICORANDIL) (TA) [Concomitant]
  3. HALFDIGOXIN (DIGOXIN) (TA) [Concomitant]
  4. PENALDINE (TICLOPIDINE HYDROCHLORIDE) (TA) [Concomitant]
  5. MUCOSTA (REBAMIPIDE) (TA) [Concomitant]
  6. THYRADIN S (LEVOTHYROXINE SODIUM) (TA) [Concomitant]
  7. ASPIRIN [Concomitant]
  8. HUMALOG (INSULIN LISPRO) (AMV) [Concomitant]
  9. HUMACART N (AMV) [Concomitant]
  10. CIBENOL (CIBENZOLINE SUCCINATE) (TA) [Concomitant]

REACTIONS (6)
  - BLOOD CREATININE INCREASED [None]
  - BLOOD PRESSURE SYSTOLIC DECREASED [None]
  - DIZZINESS [None]
  - HYPERKALAEMIA [None]
  - NAUSEA [None]
  - PALPITATIONS [None]
